FAERS Safety Report 6140958-6 (Version None)
Quarter: 2009Q1

REPORT INFORMATION
  Report Type: 
  Country: None (occurrence: None)
  Receive Date: 20090331
  Receipt Date: 20090316
  Transmission Date: 20090719
  Serious: Yes (Death, Hospitalization, Other)
  Sender: FDA-Public Use
  Company Number: A-CH2009-24480

PATIENT
  Age: 43 Year
  Sex: Female
  Weight: 53 kg

DRUGS (4)
  1. TRACLEER [Suspect]
     Indication: PULMONARY ARTERIAL HYPERTENSION
     Dosage: 125 MG, BID, ORAL; 62.5 MG, BID,
     Route: 048
     Dates: start: 20070712, end: 20070811
  2. TRACLEER [Suspect]
     Indication: PULMONARY ARTERIAL HYPERTENSION
     Dosage: 125 MG, BID, ORAL; 62.5 MG, BID,
     Route: 048
     Dates: start: 20070812, end: 20090201
  3. WARFARIN SODIUM [Concomitant]
  4. LEVOCETIRIZINE (LEVOCETERIZINE) [Concomitant]

REACTIONS (5)
  - ALANINE AMINOTRANSFERASE INCREASED [None]
  - ANAESTHETIC COMPLICATION [None]
  - ASPARTATE AMINOTRANSFERASE INCREASED [None]
  - BLOOD BILIRUBIN INCREASED [None]
  - ENDOMETRIAL DISORDER [None]
